FAERS Safety Report 19670363 (Version 1)
Quarter: 2021Q3

REPORT INFORMATION
  Report Type: Spontaneous
  Country: US (occurrence: US)
  Receive Date: 20210806
  Receipt Date: 20210806
  Transmission Date: 20211014
  Serious: Yes (Hospitalization, Other)
  Sender: FDA-Public Use
  Company Number: US-SAOL THERAPEUTICS-2020SAO00473

PATIENT
  Age: 33 Year
  Sex: Male
  Weight: 51.25 kg

DRUGS (7)
  1. ALBUTEROL SULFATE. [Concomitant]
     Active Substance: ALBUTEROL SULFATE
     Dosage: UNK, AS NEEDED
  2. PREVACID [Concomitant]
     Active Substance: LANSOPRAZOLE
  3. UNSPECIFIED ENEMA [Concomitant]
  4. ACETAMINOPHEN. [Concomitant]
     Active Substance: ACETAMINOPHEN
     Dosage: 500 MG, 6X/DAY
  5. CLINDAMYCIN. [Concomitant]
     Active Substance: CLINDAMYCIN
  6. LIORESAL [Suspect]
     Active Substance: BACLOFEN
     Indication: MUSCLE SPASTICITY
     Dosage: 1175.9 ?G, \DAY
     Route: 037
     Dates: start: 2014, end: 202010
  7. LIORESAL [Suspect]
     Active Substance: BACLOFEN
     Indication: DIPLEGIA
     Dosage: 200 ?G, \DAY
     Route: 037
     Dates: start: 202010

REACTIONS (2)
  - Acinetobacter infection [Recovering/Resolving]
  - Implant site infection [Recovering/Resolving]

NARRATIVE: CASE EVENT DATE: 20201009
